FAERS Safety Report 6271078-8 (Version None)
Quarter: 2009Q3

REPORT INFORMATION
  Report Type: 
  Country: None (occurrence: None)
  Receive Date: 20090716
  Receipt Date: 20090709
  Transmission Date: 20100115
  Serious: Yes (Hospitalization, Other)
  Sender: FDA-Public Use
  Company Number: US-ALLERGAN-0905556US

PATIENT
  Age: 48 Year
  Sex: Male

DRUGS (5)
  1. BOTOX [Suspect]
     Indication: TORTICOLLIS
     Dosage: 400 UNITS, SINGLE
     Route: 030
     Dates: start: 20071005, end: 20071005
  2. BOTOX [Suspect]
     Dosage: UNK, SINGLE
     Route: 030
  3. BOTOX [Suspect]
     Dosage: 300 UNITS, SINGLE
     Route: 030
     Dates: start: 20070618, end: 20070618
  4. BOTOX [Suspect]
     Dosage: 300 UNITS, SINGLE
     Route: 030
     Dates: start: 20070820, end: 20070820
  5. BOTOX [Suspect]
     Dosage: 300 UNITS, SINGLE
     Route: 030
     Dates: start: 20070920, end: 20070920

REACTIONS (24)
  - AREFLEXIA [None]
  - ARTERIAL OCCLUSIVE DISEASE [None]
  - BLOOD PRESSURE ABNORMAL [None]
  - CARDIAC DISORDER [None]
  - DIARRHOEA [None]
  - DYSKINESIA [None]
  - DYSPHAGIA [None]
  - DYSPNOEA [None]
  - GASTROOESOPHAGEAL REFLUX DISEASE [None]
  - MUSCLE SPASMS [None]
  - MUSCLE TWITCHING [None]
  - NEUROPATHY PERIPHERAL [None]
  - OVERDOSE [None]
  - PARAESTHESIA [None]
  - PARKINSON'S DISEASE [None]
  - PLEURAL DISORDER [None]
  - PLEURAL EFFUSION [None]
  - PNEUMONIA ASPIRATION [None]
  - RASH [None]
  - TREMOR [None]
  - URTICARIA [None]
  - VASCULAR OCCLUSION [None]
  - VISION BLURRED [None]
  - WEIGHT DECREASED [None]
